FAERS Safety Report 7748091-4 (Version None)
Quarter: 2011Q3

REPORT INFORMATION
  Report Type: 
  Country: None (occurrence: None)
  Receive Date: 20110913
  Receipt Date: 20110714
  Transmission Date: 20111222
  Serious: No
  Sender: FDA-Public Use
  Company Number: US-ALLERGAN-1109537US

PATIENT
  Age: 18 Year
  Sex: Female

DRUGS (3)
  1. DIFFERIN [Concomitant]
     Indication: ACNE
     Dosage: UNK
     Route: 061
     Dates: start: 20100201, end: 20110501
  2. MINOCYCLINE HCL [Concomitant]
     Indication: ACNE
     Dosage: 100 MG, QD
     Route: 048
     Dates: start: 20110301, end: 20110501
  3. ACZONE [Suspect]
     Indication: ACNE
     Dosage: UNK
     Route: 061
     Dates: start: 20110301, end: 20110501

REACTIONS (1)
  - SKIN HYPOPIGMENTATION [None]
